FAERS Safety Report 11185899 (Version 1)
Quarter: 2015Q2

REPORT INFORMATION
  Report Type: Spontaneous
  Country: DE (occurrence: None)
  Receive Date: 20150612
  Receipt Date: 20150612
  Transmission Date: 20150821
  Serious: Yes (Other)
  Sender: FDA-Public Use
  Company Number: MERZ NORTH AMERICA, INC.-15MRZ-00204

PATIENT
  Sex: Female

DRUGS (1)
  1. ASCLERA [Suspect]
     Active Substance: POLIDOCANOL
     Indication: VARICOSE VEIN
     Dosage: 2 AMPOULES
     Route: 042

REACTIONS (4)
  - Oropharyngeal discomfort [None]
  - Abnormal sensation in eye [None]
  - Anaphylactic shock [None]
  - Headache [None]
